FAERS Safety Report 5013619-4 (Version None)
Quarter: 2006Q2

REPORT INFORMATION
  Report Type: 
  Country: None (occurrence: None)
  Receive Date: 20060530
  Receipt Date: 20051124
  Transmission Date: 20061013
  Serious: Yes (Hospitalization)
  Sender: FDA-Public Use
  Company Number: JP-JPN-A20052871

PATIENT
  Age: 61 Year
  Sex: Female
  Weight: 35 kg

DRUGS (11)
  1. VALTREX [Suspect]
     Indication: HERPES SIMPLEX
     Dosage: 500MG TWICE PER DAY
     Route: 048
     Dates: start: 20051116, end: 20051120
  2. THEOLONG [Suspect]
     Indication: BRONCHITIS CHRONIC
     Dosage: 200MCG TWICE PER DAY
     Route: 048
     Dates: start: 20051013, end: 20051121
  3. PREDONINE [Concomitant]
     Indication: APLASIA PURE RED CELL
     Dosage: 20MG PER DAY
     Route: 048
     Dates: start: 20040501
  4. GASTER [Concomitant]
     Indication: GASTRITIS
     Dosage: 20MG TWICE PER DAY
     Route: 048
     Dates: start: 20051013
  5. CLINORIL [Concomitant]
     Indication: HERPES SIMPLEX
     Dosage: 300MG THREE TIMES PER DAY
     Route: 048
     Dates: start: 20051118, end: 20051121
  6. UNKNOWN MEDICATION [Concomitant]
     Dosage: 200MG THREE TIMES PER WEEK
     Route: 065
     Dates: start: 19980701, end: 20051121
  7. CYTOTEC [Concomitant]
     Indication: GASTRITIS
     Dosage: 1800MCG PER DAY
     Route: 048
     Dates: start: 20051013, end: 20051121
  8. ALFAROL [Concomitant]
     Indication: OSTEOPOROSIS
     Dosage: .5MCG PER DAY
     Route: 048
  9. CRAVIT [Concomitant]
     Indication: HERPES SIMPLEX
     Dosage: 300MG THREE TIMES PER DAY
     Route: 065
     Dates: start: 20051118, end: 20051121
  10. BENET [Concomitant]
     Indication: OSTEOPOROSIS
     Dosage: 2.5MG PER DAY
     Route: 048
     Dates: start: 20051013
  11. HOKUNALIN [Concomitant]
     Indication: BRONCHITIS CHRONIC
     Dosage: 1MG PER DAY
     Route: 061
     Dates: start: 20051013

REACTIONS (6)
  - CONFUSIONAL STATE [None]
  - CONVULSION [None]
  - DEPRESSED LEVEL OF CONSCIOUSNESS [None]
  - DISORIENTATION [None]
  - EPILEPSY [None]
  - EXCITABILITY [None]
